FAERS Safety Report 9688075 (Version 1)
Quarter: 2013Q4

REPORT INFORMATION
  Report Type: Spontaneous
  Country: US (occurrence: None)
  Receive Date: 20131113
  Receipt Date: 20131113
  Transmission Date: 20140711
  Serious: Yes (Death, Life-Threatening)
  Sender: FDA-Public Use
  Company Number: None

PATIENT
  Age: 70 Year
  Sex: Male
  Weight: 99.79 kg

DRUGS (4)
  1. LYRICA [Suspect]
     Dates: start: 20121201, end: 20121229
  2. BENAQZEP/HCTZ [Concomitant]
  3. ASPIRIN [Concomitant]
  4. FISH OIL [Concomitant]

REACTIONS (3)
  - Pain in extremity [None]
  - Pain in extremity [None]
  - Condition aggravated [None]
